FAERS Safety Report 4893502-5 (Version None)
Quarter: 2006Q1

REPORT INFORMATION
  Report Type: 
  Country: None (occurrence: None)
  Receive Date: 20060127
  Receipt Date: 20051212
  Transmission Date: 20060701
  Serious: Yes (Hospitalization)
  Sender: FDA-Public Use
  Company Number: US-KINGPHARMUSA00001-K200501589

PATIENT
  Age: 89 Year
  Sex: Female

DRUGS (8)
  1. ALTACE [Suspect]
     Indication: HYPERTENSIVE HEART DISEASE
     Dosage: 5 MG, QD
     Route: 048
  2. LASILIX [Suspect]
     Indication: HYPERTENSIVE HEART DISEASE
     Dosage: 40 MG, QD
     Route: 048
     Dates: end: 20041215
  3. CORDARONE [Suspect]
     Indication: HYPERTENSIVE HEART DISEASE
     Dosage: 200 MG, QD
     Route: 048
     Dates: end: 20041225
  4. SINTROM [Suspect]
     Indication: ATRIAL FIBRILLATION
     Dosage: 1 MG, QD
     Route: 048
  5. DEROXAT [Suspect]
     Indication: DYSTHYMIC DISORDER
     Dosage: 20 MG, QD
     Route: 048
     Dates: end: 20041212
  6. AMLOR [Suspect]
     Indication: HYPERTENSIVE HEART DISEASE
     Dosage: 10 MG, QD
     Route: 048
  7. VASTAREL ^BIOPHARMA^ [Concomitant]
     Dosage: 2 U, QD
     Route: 048
  8. DIFFU K [Concomitant]
     Dosage: 1800 MG, QD
     Route: 048

REACTIONS (10)
  - CARDIOMEGALY [None]
  - CHEST X-RAY ABNORMAL [None]
  - DEPRESSED LEVEL OF CONSCIOUSNESS [None]
  - DYSPNOEA [None]
  - HYPERCAPNIA [None]
  - HYPONATRAEMIA [None]
  - PNEUMONITIS [None]
  - PULMONARY FIBROSIS [None]
  - RALES [None]
  - TOTAL LUNG CAPACITY DECREASED [None]
